FAERS Safety Report 7778904-1 (Version None)
Quarter: 2011Q3

REPORT INFORMATION
  Report Type: 
  Country: None (occurrence: None)
  Receive Date: 20110926
  Receipt Date: 20100916
  Transmission Date: 20111222
  Serious: No
  Sender: FDA-Public Use
  Company Number: US-ALLERGAN-1011987US

PATIENT
  Age: 37 Year
  Sex: Female

DRUGS (1)
  1. AZELEXA? [Suspect]
     Indication: ACNE
     Dosage: 1-2 TIMES DAILY
     Route: 061

REACTIONS (2)
  - DRUG INEFFECTIVE [None]
  - SEBORRHOEA [None]
